FAERS Safety Report 6861975-4 (Version None)
Quarter: 2010Q3

REPORT INFORMATION
  Report Type: 
  Country: None (occurrence: None)
  Receive Date: 20100721
  Receipt Date: 20100617
  Transmission Date: 20110219
  Serious: No
  Sender: FDA-Public Use
  Company Number: US-BAYER-201030353GPV

PATIENT
  Age: 24 Year
  Sex: Female

DRUGS (1)
  1. YASMIN [Suspect]
     Indication: CONTRACEPTION
     Dosage: DROSPIRENONE 3 MG/ ETHINYL ESTRADIOL 0.03 MG
     Route: 048

REACTIONS (4)
  - DYSPAREUNIA [None]
  - VULVOVAGINAL BURNING SENSATION [None]
  - VULVOVAGINAL DRYNESS [None]
  - VULVOVAGINAL PAIN [None]
